FAERS Safety Report 5296548-0 (Version None)
Quarter: 2007Q1

REPORT INFORMATION
  Report Type: 
  Country: None (occurrence: None)
  Receive Date: 20070201
  Receipt Date: 20061106
  Transmission Date: 20070707
  Serious: No
  Sender: FDA-Public Use
  Company Number: 2006PV024713

PATIENT
  Age: 46 Year
  Sex: Female
  Weight: 77.5651 kg

DRUGS (5)
  1. BYETTA [Suspect]
     Indication: INSULIN RESISTANCE
     Dosage: SEE IMAGE
     Route: 058
     Dates: start: 20060330, end: 20060101
  2. BYETTA [Suspect]
     Indication: INSULIN RESISTANCE
     Dosage: SEE IMAGE
     Route: 058
     Dates: start: 20060101, end: 20060701
  3. BYETTA [Suspect]
     Indication: INSULIN RESISTANCE
     Dosage: SEE IMAGE
     Route: 058
     Dates: start: 20061030
  4. GEODON [Suspect]
     Indication: MIGRAINE
     Dates: start: 20060501, end: 20060801
  5. NORVASC [Concomitant]

REACTIONS (5)
  - ANOREXIA [None]
  - BLOOD GLUCOSE INCREASED [None]
  - HYPERTENSION [None]
  - NAUSEA [None]
  - WEIGHT DECREASED [None]
